FAERS Safety Report 20327737 (Version 1)
Quarter: 2022Q1

REPORT INFORMATION
  Report Type: Spontaneous
  Country: US (occurrence: None)
  Receive Date: 20220111
  Receipt Date: 20220111
  Transmission Date: 20220423
  Serious: Yes (Other)
  Sender: FDA-Public Use
  Company Number: None

PATIENT
  Age: 60 Year
  Sex: Male

DRUGS (1)
  1. FINASTERIDE [Suspect]
     Active Substance: FINASTERIDE
     Indication: Alopecia
     Dosage: FREQUENCY : DAILY;?
     Route: 048
     Dates: start: 20220106, end: 20220106

REACTIONS (5)
  - Chest pain [None]
  - Feeling jittery [None]
  - Malaise [None]
  - Pharyngeal swelling [None]
  - Therapy cessation [None]

NARRATIVE: CASE EVENT DATE: 20220106
